FAERS Safety Report 12358631 (Version 2)
Quarter: 2017Q4

REPORT INFORMATION
  Report Type: Spontaneous
  Country: US (occurrence: US)
  Receive Date: 20160512
  Receipt Date: 20171031
  Transmission Date: 20180320
  Serious: Yes (Hospitalization, Other)
  Sender: FDA-Public Use
  Company Number: US-BAUSCH-BL-2016-010179

PATIENT
  Sex: Male

DRUGS (2)
  1. PREDNISONE. [Suspect]
     Active Substance: PREDNISONE
     Indication: PRODUCT USED FOR UNKNOWN INDICATION
     Route: 065
  2. APRISO [Suspect]
     Active Substance: MESALAMINE
     Indication: CROHN^S DISEASE
     Route: 065
     Dates: start: 201502, end: 20160118

REACTIONS (4)
  - Off label use [Recovered/Resolved]
  - Drug ineffective [Recovered/Resolved]
  - Cystitis [Recovered/Resolved]
  - Clostridium difficile infection [Recovered/Resolved]
